FAERS Safety Report 25664201 (Version 2)
Quarter: 2025Q3

REPORT INFORMATION
  Report Type: Report from Study
  Country: US (occurrence: US)
  Receive Date: 20250811
  Receipt Date: 20250905
  Transmission Date: 20251020
  Serious: No
  Sender: SUNOVION
  Company Number: US-SUMITOMO PHARMA SWITZERLAND GMBH-2025SPA004466

PATIENT
  Age: 69 Year
  Sex: Male

DRUGS (27)
  1. ORGOVYX [Suspect]
     Active Substance: RELUGOLIX
     Indication: Prostate cancer metastatic
     Route: 048
     Dates: start: 20250329, end: 20250329
  2. ORGOVYX [Suspect]
     Active Substance: RELUGOLIX
     Indication: Prostate cancer
     Dosage: 120 MG, QD
     Route: 048
     Dates: start: 20250330
  3. POLYETHYLENE GLYCOL 3350 [Concomitant]
     Active Substance: POLYETHYLENE GLYCOL 3350
  4. PREDNISONE [Concomitant]
     Active Substance: PREDNISONE
  5. QUETIAPINE FUMARATE [Concomitant]
     Active Substance: QUETIAPINE FUMARATE
  6. ROSUVASTATIN CALCIUM [Concomitant]
     Active Substance: ROSUVASTATIN CALCIUM
  7. VALACYCLOVIR HYDROCHLORIDE [Concomitant]
     Active Substance: VALACYCLOVIR HYDROCHLORIDE
  8. TRAZODONE [Concomitant]
     Active Substance: TRAZODONE HYDROCHLORIDE
  9. NUBEQA [Concomitant]
     Active Substance: DAROLUTAMIDE
  10. ACYCLOVIR [Concomitant]
     Active Substance: ACYCLOVIR
  11. ADVAIR DISKUS [Concomitant]
     Active Substance: FLUTICASONE PROPIONATE\SALMETEROL XINAFOATE
  12. ATROVENT HFA [Concomitant]
     Active Substance: IPRATROPIUM BROMIDE
  13. BENZONATATE [Concomitant]
     Active Substance: BENZONATATE
  14. BUSPIRONE [Concomitant]
     Active Substance: BUSPIRONE HYDROCHLORIDE
  15. CLINDAMYCIN [Concomitant]
     Active Substance: CLINDAMYCIN
  16. CLONAZEPAM [Concomitant]
     Active Substance: CLONAZEPAM
  17. DIAZEPAM [Concomitant]
     Active Substance: DIAZEPAM
  18. FLONASE [Concomitant]
     Active Substance: FLUTICASONE PROPIONATE
  19. FLUOXETINE [Concomitant]
     Active Substance: FLUOXETINE HYDROCHLORIDE
  20. GLUCOSAMINE [Concomitant]
     Active Substance: GLUCOSAMINE
  21. HYDROXYZINE [Concomitant]
     Active Substance: HYDROXYZINE HYDROCHLORIDE
  22. IPRATROPIUM BROMIDE [Concomitant]
     Active Substance: IPRATROPIUM BROMIDE
  23. LATANOPROST [Concomitant]
     Active Substance: LATANOPROST
  24. MOMETASONE [Concomitant]
     Active Substance: MOMETASONE
  25. VITAMINS [Concomitant]
     Active Substance: VITAMINS
  26. PROVENTIL [Concomitant]
     Active Substance: ALBUTEROL
  27. SYMBICORT [Concomitant]
     Active Substance: BUDESONIDE\FORMOTEROL FUMARATE DIHYDRATE

REACTIONS (7)
  - COVID-19 [Unknown]
  - Crying [Unknown]
  - Eating disorder [Unknown]
  - Nausea [Unknown]
  - Fatigue [Unknown]
  - Hot flush [Unknown]
  - Insomnia [Unknown]
